FAERS Safety Report 4760073-3 (Version None)
Quarter: 2005Q3

REPORT INFORMATION
  Report Type: 
  Country: None (occurrence: None)
  Receive Date: 20050831
  Receipt Date: 20050831
  Transmission Date: 20060218
  Serious: Yes (Other)
  Sender: FDA-Public Use
  Company Number: None

PATIENT
  Sex: Female
  Weight: 81.6475 kg

DRUGS (5)
  1. FENTANYL [Suspect]
     Indication: BACK DISORDER
     Dosage: 1 50MCG Q 3 DAYS
     Dates: start: 20050809, end: 20050826
  2. NAPROXEN [Concomitant]
  3. VALIUM [Concomitant]
  4. EFFEXOR [Concomitant]
  5. TIMOLOL GFS [Concomitant]

REACTIONS (2)
  - MUSCULAR WEAKNESS [None]
  - PHARMACEUTICAL PRODUCT COMPLAINT [None]
